FAERS Safety Report 4665350-2 (Version None)
Quarter: 2005Q2

REPORT INFORMATION
  Report Type: 
  Country: None (occurrence: None)
  Receive Date: 20050517
  Receipt Date: 20050218
  Transmission Date: 20051028
  Serious: No
  Sender: FDA-Public Use
  Company Number: S05-USA-00873-01

PATIENT
  Age: 73 Year
  Sex: Female

DRUGS (9)
  1. NAMENDA [Suspect]
     Indication: COGNITIVE DISORDER
     Dosage: 5 MG QD PO
     Route: 048
     Dates: start: 20050120, end: 20060126
  2. NAMENDA [Suspect]
     Indication: COGNITIVE DISORDER
     Dosage: 5 MG BID PO
     Route: 048
     Dates: start: 20050127, end: 20050202
  3. NAMENDA [Suspect]
     Indication: COGNITIVE DISORDER
     Dosage: 15 MG QD PO
     Route: 048
     Dates: start: 20050203, end: 20050209
  4. NAMENDA [Suspect]
     Indication: COGNITIVE DISORDER
     Dosage: 10 MG BID PO
     Route: 048
     Dates: start: 20050210
  5. ARICEPT [Suspect]
     Indication: COGNITIVE DISORDER
     Dosage: 10 MG QD PO
     Route: 048
     Dates: start: 20050120
  6. SYNTHROID [Concomitant]
  7. PRAVACHOL [Concomitant]
  8. LOTREL [Concomitant]
  9. SKELAXIN [Concomitant]

REACTIONS (2)
  - INSOMNIA [None]
  - NAUSEA [None]
